FAERS Safety Report 20870051 (Version 1)
Quarter: 2022Q2

REPORT INFORMATION
  Report Type: Spontaneous
  Country: PL (occurrence: PL)
  Receive Date: 20220525
  Receipt Date: 20220525
  Transmission Date: 20220721
  Serious: Yes (Life-Threatening, Other)
  Sender: FDA-Public Use
  Company Number: PL-SUN PHARMACEUTICAL INDUSTRIES LTD-2022R1-337651

PATIENT
  Age: 37 Year
  Sex: Male

DRUGS (3)
  1. CARBOPLATIN [Suspect]
     Active Substance: CARBOPLATIN
     Indication: Basal cell carcinoma
     Dosage: 345 MILLIGRAM, ONCE OR TWICE A DAY
     Route: 065
  2. EPIRUBICIN [Suspect]
     Active Substance: EPIRUBICIN
     Indication: Basal cell carcinoma
     Dosage: 65 MILLIGRAM, ONCE UP TO THREE TIMES A DAY
     Route: 065
  3. ANSAMITOMICIN P-3 [Suspect]
     Active Substance: ANSAMITOMICIN P-3
     Indication: Basal cell carcinoma
     Dosage: 10 CYCLES
     Route: 065

REACTIONS (3)
  - Thrombocytopenia [Unknown]
  - Leukopenia [Unknown]
  - Neoplasm recurrence [Unknown]
